FAERS Safety Report 23791110 (Version 1)
Quarter: 2024Q2

REPORT INFORMATION
  Report Type: Spontaneous
  Country: CN (occurrence: CN)
  Receive Date: 20240428
  Receipt Date: 20240428
  Transmission Date: 20240716
  Serious: Yes (Other)
  Sender: FDA-Public Use
  Company Number: CN-ALCON LABORATORIES-ALC2024CN002166

PATIENT
  Age: 3 Year
  Sex: Female
  Weight: 17 kg

DRUGS (1)
  1. CYCLOPENTOLATE HYDROCHLORIDE [Suspect]
     Active Substance: CYCLOPENTOLATE HYDROCHLORIDE
     Indication: Mydriasis
     Dosage: 1 DROP, TID
     Route: 047
     Dates: start: 20240419, end: 20240419

REACTIONS (1)
  - Delirium [Recovering/Resolving]

NARRATIVE: CASE EVENT DATE: 20240419
